FAERS Safety Report 5646020-0 (Version None)
Quarter: 2008Q1

REPORT INFORMATION
  Report Type: 
  Country: None (occurrence: None)
  Receive Date: 20080229
  Receipt Date: 20080219
  Transmission Date: 20080703
  Serious: Yes (Other)
  Sender: FDA-Public Use
  Company Number: US-PFIZER INC-2008016329

PATIENT
  Age: 56 Year
  Sex: Male

DRUGS (3)
  1. DILANTIN [Suspect]
  2. ASPIRIN [Concomitant]
  3. PHENOBARBITAL TAB [Concomitant]

REACTIONS (1)
  - URTICARIA [None]
